FAERS Safety Report 26026206 (Version 1)
Quarter: 2025Q4

REPORT INFORMATION
  Report Type: Spontaneous
  Country: EU (occurrence: EU)
  Receive Date: 20251111
  Receipt Date: 20251111
  Transmission Date: 20260117
  Serious: Yes (Other)
  Sender: ASTELLAS
  Company Number: EU-ASTELLAS-2025-AER-061761

PATIENT
  Age: 78 Year
  Sex: Male

DRUGS (4)
  1. ENZALUTAMIDE [Suspect]
     Active Substance: ENZALUTAMIDE
     Indication: Prostate cancer
     Route: 050
     Dates: start: 20230622
  2. ENZALUTAMIDE [Suspect]
     Active Substance: ENZALUTAMIDE
     Route: 050
     Dates: start: 20241024
  3. TALAZOPARIB [Suspect]
     Active Substance: TALAZOPARIB
     Indication: Prostate cancer
     Route: 065
     Dates: start: 20241024
  4. TALAZOPARIB [Suspect]
     Active Substance: TALAZOPARIB
     Route: 065
     Dates: start: 20230622

REACTIONS (2)
  - Anaemia [Recovering/Resolving]
  - Thrombocytopenia [Recovering/Resolving]
